FAERS Safety Report 4807774-6 (Version None)
Quarter: 2005Q4

REPORT INFORMATION
  Report Type: 
  Country: None (occurrence: None)
  Receive Date: 20051020
  Receipt Date: 20051008
  Transmission Date: 20060501
  Serious: Yes (Other)
  Sender: FDA-Public Use
  Company Number: 2005139409

PATIENT
  Sex: Male

DRUGS (1)
  1. UNISOM [Suspect]
     Dosage: 8 SLEEPGELS WITHIN 2 HOURS, ORAL
     Route: 048

REACTIONS (2)
  - OVERDOSE [None]
  - SOMNOLENCE [None]
